FAERS Safety Report 8888538 (Version 5)
Quarter: 2014Q1

REPORT INFORMATION
  Report Type: Report from Study
  Country: JP (occurrence: JP)
  Receive Date: 20121106
  Receipt Date: 20140121
  Transmission Date: 20141002
  Serious: Yes (Other)
  Sender: FDA-Public Use
  Company Number: JP-VERTEX PHARMACEUTICAL INC.-2012-024081

PATIENT
  Age: 48 Year
  Sex: Male

DRUGS (12)
  1. VX-950 (TELAPREVIR) [Suspect]
     Indication: CHRONIC HEPATITIS C
     Dosage: 2250 MG, QD
     Route: 048
     Dates: start: 20120716, end: 20120920
  2. PEGINTERFERON ALFA-2B [Suspect]
     Indication: HEPATITIS C
     Dosage: 1.5 ?G/KG, QW
     Route: 058
     Dates: start: 20120714, end: 20120920
  3. PEGINTERFERON ALFA-2B [Suspect]
     Dosage: 0.75 ?G/KG, QW
     Route: 058
     Dates: start: 20121005, end: 20121026
  4. PEGINTERFERON ALFA-2B [Suspect]
     Dosage: 1.5 ?G, QW
     Route: 058
     Dates: start: 20121102, end: 20121214
  5. RIBAVIRIN [Suspect]
     Indication: HEPATITIS C
     Dosage: 1000 MG, QD
     Route: 048
     Dates: start: 20120714, end: 20120920
  6. RIBAVIRIN [Suspect]
     Dosage: 1000 MG, QD
     Route: 048
     Dates: start: 20120929, end: 20121221
  7. URSO [Concomitant]
     Dosage: 600 MG, QD
     Route: 048
     Dates: end: 20120929
  8. GLYCYRON [Concomitant]
     Dosage: 4 DF, QD
     Route: 048
     Dates: end: 20120929
  9. AMLODIN [Concomitant]
     Dosage: 2.5 MG, QD
     Route: 048
  10. HALCION [Concomitant]
     Dosage: 0.125 MG, PRN
     Route: 048
     Dates: start: 20120824, end: 20120906
  11. MYSLEE [Concomitant]
     Dosage: 10 MG, QD
     Route: 048
     Dates: start: 20120831, end: 20130104
  12. REBAMIPIDE [Concomitant]
     Dosage: 100 MG, QD, PRN
     Route: 048
     Dates: start: 20121116, end: 20121219

REACTIONS (5)
  - White blood cell count decreased [Recovered/Resolved]
  - White blood cell count decreased [Recovered/Resolved]
  - Neutropenia [Recovered/Resolved]
  - Neutrophil count decreased [Recovered/Resolved]
  - Neutrophil count decreased [Recovered/Resolved]
